FAERS Safety Report 21860049 (Version 2)
Quarter: 2023Q2

REPORT INFORMATION
  Report Type: Report from Study
  Country: US (occurrence: US)
  Receive Date: 20230113
  Receipt Date: 20230426
  Transmission Date: 20230722
  Serious: No
  Sender: FDA-Public Use
  Company Number: US-ABBVIE-4269657

PATIENT
  Age: 77 Year
  Sex: Female

DRUGS (2)
  1. IMBRUVICA [Suspect]
     Active Substance: IBRUTINIB
     Indication: Chronic lymphocytic leukaemia
     Route: 048
     Dates: start: 20180118
  2. IMBRUVICA [Suspect]
     Active Substance: IBRUTINIB
     Indication: Chronic lymphocytic leukaemia
     Dosage: TIME INTERVAL: 0.04761905 DAYS: LAST ADMIN DATE: JAN 2018
     Route: 048
     Dates: start: 20180110

REACTIONS (6)
  - Head injury [Unknown]
  - Fall [Unknown]
  - Platelet count decreased [Unknown]
  - Face injury [Unknown]
  - Fall [Unknown]
  - Contusion [Unknown]

NARRATIVE: CASE EVENT DATE: 20230301
